FAERS Safety Report 19978533 (Version 1)
Quarter: 2021Q4

REPORT INFORMATION
  Report Type: Spontaneous
  Country: US (occurrence: US)
  Receive Date: 20211020
  Receipt Date: 20211020
  Transmission Date: 20220304
  Serious: No
  Sender: FDA-Public Use
  Company Number: None

PATIENT
  Age: 69 Year
  Sex: Female

DRUGS (1)
  1. AFINITOR [Suspect]
     Active Substance: EVEROLIMUS
     Indication: Neoplasm malignant
     Route: 048
     Dates: start: 202102

REACTIONS (2)
  - Wound infection [None]
  - Pulmonary thrombosis [None]

NARRATIVE: CASE EVENT DATE: 20210527
